FAERS Safety Report 12737969 (Version 1)
Quarter: 2016Q3

REPORT INFORMATION
  Report Type: Spontaneous
  Country: US (occurrence: US)
  Receive Date: 20160912
  Receipt Date: 20160912
  Transmission Date: 20161109
  Serious: No
  Sender: FDA-Public Use
  Company Number: US-SA-2016SA112344

PATIENT
  Age: 55 Year
  Sex: Female

DRUGS (5)
  1. LEVEMIR [Concomitant]
     Active Substance: INSULIN DETEMIR
  2. LEVEMIR [Concomitant]
     Active Substance: INSULIN DETEMIR
  3. HUMALOG [Concomitant]
     Active Substance: INSULIN LISPRO
  4. TOUJEO [Suspect]
     Active Substance: INSULIN GLARGINE
     Indication: TYPE 2 DIABETES MELLITUS
     Dosage: DOSE:38 UNIT(S)
     Route: 065
     Dates: start: 201604
  5. SOLOSTAR [Concomitant]
     Active Substance: DEVICE
     Indication: TYPE 2 DIABETES MELLITUS
     Dates: start: 201604

REACTIONS (6)
  - Dyspnoea [Unknown]
  - Asthenia [Unknown]
  - Pruritus [Unknown]
  - Hypersensitivity [Unknown]
  - Heart rate increased [Unknown]
  - Urticaria [Unknown]

NARRATIVE: CASE EVENT DATE: 201604
